FAERS Safety Report 9628103 (Version 4)
Quarter: 2014Q2

REPORT INFORMATION
  Report Type: Spontaneous
  Country: NL (occurrence: NL)
  Receive Date: 20131017
  Receipt Date: 20140421
  Transmission Date: 20141212
  Serious: Yes (Hospitalization, Other)
  Sender: FDA-Public Use
  Company Number: NL-RANBAXY-2013RR-74170

PATIENT
  Sex: Male

DRUGS (2)
  1. SERTRALINE 50 RANBAXY, FILMOMHULDE TABLETTEN 50 MG [Suspect]
     Indication: PRODUCT USED FOR UNKNOWN INDICATION
     Dosage: 100 MG, 4 TIMES
     Route: 065
  2. SERTRALINE SANDOZ [Concomitant]
     Indication: PRODUCT USED FOR UNKNOWN INDICATION
     Dosage: UNK
     Route: 065

REACTIONS (4)
  - Loss of consciousness [Unknown]
  - Road traffic accident [Unknown]
  - Emotional distress [Unknown]
  - Economic problem [Unknown]
